FAERS Safety Report 6958365-2 (Version None)
Quarter: 2010Q3

REPORT INFORMATION
  Report Type: 
  Country: None (occurrence: None)
  Receive Date: 20100831
  Receipt Date: 20100826
  Transmission Date: 20110219
  Serious: Yes (Hospitalization)
  Sender: FDA-Public Use
  Company Number: AU-ROCHE-636027

PATIENT
  Sex: Female
  Weight: 78.7 kg

DRUGS (12)
  1. BEVACIZUMAB [Suspect]
     Indication: BREAST CANCER
     Route: 042
     Dates: start: 20090313
  2. BEVACIZUMAB [Suspect]
     Dosage: LAST DOSE RECEIVED PRIOR TO SAE REPORTED AS 11 JUNE 2009.  DOSE FORM REPORTED AS INTRAVENOUS.
     Route: 042
     Dates: start: 20090331
  3. FLUOROURACIL [Suspect]
     Indication: BREAST CANCER
     Dosage: LAST DOSE PRIOR TO SAE REPORTED AS 12 MAY 2009.  DOSE FORM REPORTED AS INTRAVENOUS.
     Route: 042
     Dates: start: 20090331, end: 20090512
  4. EPIRUBICIN [Suspect]
     Indication: BREAST CANCER
     Dosage: LAST DOSE PRIOR TO SAE REPORTED AS 12 MAY 2009.  DOSE FORM REPORTED AS INTRAVENOUS.
     Route: 042
     Dates: start: 20090331, end: 20090512
  5. CYCLOPHOSPHAMIDE [Suspect]
     Indication: BREAST CANCER
     Dosage: LAST DOSE PRIOR TO SAE REPORTED AS 12 MAY 2009.  DOSE FORM REPORTED AS INTRAVENOUS.
     Route: 042
     Dates: start: 20090331, end: 20090512
  6. DOCETAXEL [Suspect]
     Indication: BREAST CANCER
     Dosage: PERMANENTLY DISCONTINUED.
     Route: 042
     Dates: start: 20090611, end: 20090630
  7. NEXIUM [Concomitant]
     Dates: start: 20060101
  8. MERSYNDOL [Concomitant]
     Dosage: TDD:PEN. DRUG REPORTED AS  MERSHNOMAX
     Dates: start: 19950101
  9. IBUPROFEN [Concomitant]
     Dates: start: 20090501
  10. MEXAFORM [Concomitant]
     Dates: start: 19950101
  11. DEXMETHSONE [Concomitant]
     Dates: start: 20081116
  12. DEXMETHSONE [Concomitant]
     Dates: start: 20090616, end: 20090617

REACTIONS (2)
  - GASTROINTESTINAL INFLAMMATION [None]
  - NEUTROPENIA [None]
